FAERS Safety Report 9875783 (Version 2)
Quarter: 2015Q1

REPORT INFORMATION
  Report Type: Other
  Country: US (occurrence: US)
  Receive Date: 20140206
  Receipt Date: 20150209
  Transmission Date: 20150721
  Serious: Yes (Other)
  Sender: FDA-Public Use
  Company Number: US-ACORDA-ACO_37031_2013

PATIENT
  Age: 60 Year
  Sex: Female

DRUGS (2)
  1. AMPYRA [Suspect]
     Active Substance: DALFAMPRIDINE
     Dosage: 10 MG, BID
     Route: 065
     Dates: end: 201407
  2. AMPYRA [Suspect]
     Active Substance: DALFAMPRIDINE
     Indication: MULTIPLE SCLEROSIS
     Dosage: 10 MG, Q 12 HRS
     Route: 048
     Dates: end: 2013

REACTIONS (10)
  - Central nervous system lesion [Unknown]
  - Drug ineffective [Unknown]
  - Lower limb fracture [Recovered/Resolved]
  - Fall [Unknown]
  - Abasia [Recovering/Resolving]
  - Fall [Unknown]
  - Multiple sclerosis [Not Recovered/Not Resolved]
  - Therapy cessation [Unknown]
  - Gait disturbance [Not Recovered/Not Resolved]
  - Memory impairment [Not Recovered/Not Resolved]

NARRATIVE: CASE EVENT DATE: 2013
